FAERS Safety Report 10485699 (Version 3)
Quarter: 2014Q4

REPORT INFORMATION
  Report Type: Report from Study
  Country: BR (occurrence: BR)
  Receive Date: 20141001
  Receipt Date: 20141218
  Transmission Date: 20150528
  Serious: Yes (Hospitalization, Disabling)
  Sender: FDA-Public Use
  Company Number: BR-ROCHE-1264947

PATIENT
  Sex: Female
  Weight: 88 kg

DRUGS (9)
  1. REGULAR INSULIN [Concomitant]
     Active Substance: INSULIN NOS
  2. METHOTREXATE [Concomitant]
     Active Substance: METHOTREXATE
  3. MABTHERA [Suspect]
     Active Substance: RITUXIMAB
     Indication: RHEUMATOID ARTHRITIS
     Route: 042
     Dates: start: 20120115, end: 20130215
  4. PROPRANOLOL [Concomitant]
     Active Substance: PROPRANOLOL\PROPRANOLOL HYDROCHLORIDE
  5. METFORMIN [Concomitant]
     Active Substance: METFORMIN HYDROCHLORIDE
     Indication: DIABETES MELLITUS
  6. FOLIC ACID. [Concomitant]
     Active Substance: FOLIC ACID
  7. INSULIN [Concomitant]
     Active Substance: INSULIN NOS
     Indication: DIABETES MELLITUS
  8. NPH INSULIN [Concomitant]
     Active Substance: INSULIN BEEF
  9. NIMESULIDE [Concomitant]
     Active Substance: NIMESULIDE
     Indication: PAIN

REACTIONS (10)
  - Abasia [Not Recovered/Not Resolved]
  - Joint dislocation [Not Recovered/Not Resolved]
  - Renal impairment [Not Recovered/Not Resolved]
  - Rheumatoid arthritis [Not Recovered/Not Resolved]
  - Peripheral swelling [Not Recovered/Not Resolved]
  - Wound [Unknown]
  - Musculoskeletal disorder [Recovered/Resolved]
  - Finger deformity [Not Recovered/Not Resolved]
  - Diabetes mellitus [Recovering/Resolving]
  - Pain in extremity [Not Recovered/Not Resolved]
